FAERS Safety Report 6399867-X (Version None)
Quarter: 2009Q4

REPORT INFORMATION
  Report Type: 
  Country: None (occurrence: None)
  Receive Date: 20091014
  Receipt Date: 20091005
  Transmission Date: 20100525
  Serious: Yes (Death, Other)
  Sender: FDA-Public Use
  Company Number: AR-WATSON-2009-08283

PATIENT
  Age: 52 Year
  Sex: Female

DRUGS (2)
  1. RANITIDINE HYDROCHLORIDE (WATSON LABORATORIES) [Suspect]
     Indication: GASTROINTESTINAL DISORDER THERAPY
     Dosage: 100 MG, SINGLE
     Route: 042
  2. SCOPOLAMINE                        /00008701/ [Suspect]
     Indication: GASTROINTESTINAL DISORDER THERAPY
     Dosage: UNK
     Route: 042

REACTIONS (3)
  - CARDIAC ARREST [None]
  - COMA [None]
  - VENTRICULAR ARRHYTHMIA [None]
